FAERS Safety Report 11743358 (Version 2)
Quarter: 2015Q4

REPORT INFORMATION
  Report Type: Spontaneous
  Country: US (occurrence: US)
  Receive Date: 20151116
  Receipt Date: 20151120
  Transmission Date: 20160304
  Serious: Yes (Other)
  Sender: FDA-Public Use
  Company Number: US-BRAINTREE LABORATORIES-150470

PATIENT
  Age: 49 Year
  Sex: Male
  Weight: 135.17 kg

DRUGS (1)
  1. SUPREP BOWEL PREP [Suspect]
     Active Substance: MAGNESIUM SULFATE\POTASSIUM SULFATE\SODIUM SULFATE
     Indication: COLONOSCOPY
     Dosage: 1.5 X 6 OZ.BOTTLE
     Route: 048
     Dates: start: 20151104, end: 20151105

REACTIONS (2)
  - Abdominal pain [None]
  - Urinary tract infection [None]

NARRATIVE: CASE EVENT DATE: 20151104
